FAERS Safety Report 8687906 (Version 4)
Quarter: 2012Q4

REPORT INFORMATION
  Report Type: Report from Study
  Country: US (occurrence: US)
  Receive Date: 20120727
  Receipt Date: 20121129
  Transmission Date: 20130627
  Serious: Yes (Hospitalization)
  Sender: FDA-Public Use
  Company Number: US-UCBSA-062028

PATIENT
  Age: 56 Year
  Sex: Female
  Weight: 81.8 kg

DRUGS (6)
  1. CERTOLIZUMAB PEGOL [Suspect]
     Indication: PSORIATIC ARTHROPATHY
     Route: 058
     Dates: start: 20110105, end: 20120718
  2. AMBIEN [Concomitant]
     Indication: INSOMNIA
     Dosage: QHS
     Route: 048
     Dates: start: 200301
  3. ELAVIL [Concomitant]
     Indication: INSOMNIA
     Route: 048
     Dates: start: 199901
  4. BENTYL [Concomitant]
     Indication: IRRITABLE BOWEL SYNDROME
     Route: 048
     Dates: start: 200201
  5. FLEXERIL [Concomitant]
     Indication: INSOMNIA
     Dosage: QHS
     Route: 048
     Dates: start: 200308
  6. FOLIC ACID [Concomitant]
     Indication: VITAMIN SUPPLEMENTATION
     Route: 048
     Dates: start: 200303

REACTIONS (1)
  - Staphylococcal abscess [Recovered/Resolved]
